FAERS Safety Report 5390832-8 (Version None)
Quarter: 2007Q3

REPORT INFORMATION
  Report Type: 
  Country: None (occurrence: None)
  Receive Date: 20070712
  Receipt Date: 20070624
  Transmission Date: 20080115
  Serious: Yes (Other)
  Sender: FDA-Public Use
  Company Number: 6034959

PATIENT
  Age: 29 Year
  Sex: Male

DRUGS (4)
  1. AMISULPRID DURA [Suspect]
     Indication: SUICIDE ATTEMPT
     Dosage: 1000 MG (100 MG, 10 IN 1 ONCE)
     Route: 048
  2. CITALOPRAM                  (40 MG, TABLET) (CITALOPRAM) [Suspect]
     Indication: SUICIDE ATTEMPT
     Dosage: 160 MG (40 MG, 4 IN 1 ONCE)
     Route: 048
  3. TERAZEPAM                      (TABLET) (TERAZEPAM) [Suspect]
     Indication: SUICIDE ATTEMPT
     Dosage: (7 IN 1 ONCE)
     Route: 048
     Dates: start: 20070624
  4. TEBONIN INTENS            (TABLET) (GINGO BILOBA EXTRACT) [Suspect]
     Indication: SUICIDE ATTEMPT
     Dosage: (13 IN 1 ONCE)
     Route: 048
     Dates: start: 20070624

REACTIONS (5)
  - AGITATION [None]
  - ALCOHOL USE [None]
  - HYPERVENTILATION [None]
  - RESTLESSNESS [None]
  - SUICIDE ATTEMPT [None]
